FAERS Safety Report 11709881 (Version 1)
Quarter: 2015Q4

REPORT INFORMATION
  Report Type: Spontaneous
  Country: US (occurrence: US)
  Receive Date: 20151104
  Receipt Date: 20151104
  Transmission Date: 20160304
  Serious: No
  Sender: FDA-Public Use
  Company Number: US-ELI_LILLY_AND_COMPANY-US201102001631

PATIENT
  Age: 80 Year
  Sex: Female
  Weight: 58.96 kg

DRUGS (7)
  1. FORTEO [Suspect]
     Active Substance: TERIPARATIDE
     Indication: OSTEOPOROSIS
     Dosage: 20 UG, DAILY (1/D)
     Dates: start: 20100428
  2. FORTEO [Suspect]
     Active Substance: TERIPARATIDE
     Dosage: 20 UG, DAILY (1/D)
     Dates: end: 20101217
  3. NORVASC [Concomitant]
     Active Substance: AMLODIPINE BESYLATE
  4. CLONAZEPAM. [Concomitant]
     Active Substance: CLONAZEPAM
  5. HYDROCHLOROTHIAZIDE. [Concomitant]
     Active Substance: HYDROCHLOROTHIAZIDE
  6. CALCIUM [Concomitant]
     Active Substance: CALCIUM
     Dosage: 1800 MG, UNK
  7. SYNTHROID [Concomitant]
     Active Substance: LEVOTHYROXINE SODIUM

REACTIONS (6)
  - Intentional product misuse [Recovered/Resolved]
  - Peripheral swelling [Recovered/Resolved]
  - Blood calcium increased [Unknown]
  - Heart rate abnormal [Unknown]
  - Limb discomfort [Unknown]
  - Blood pressure increased [Recovered/Resolved]

NARRATIVE: CASE EVENT DATE: 201005
